FAERS Safety Report 25993460 (Version 2)
Quarter: 2025Q4

REPORT INFORMATION
  Report Type: Spontaneous
  Country: GB (occurrence: GB)
  Receive Date: 20251104
  Receipt Date: 20251119
  Transmission Date: 20260117
  Serious: Yes (Other)
  Sender: CELLTRION
  Company Number: None

PATIENT

DRUGS (6)
  1. YUFLYMA [Suspect]
     Active Substance: ADALIMUMAB-AATY
     Indication: Psoriatic arthropathy
     Dosage: 40MG ONCE EVERY 2 WEEKS
     Dates: start: 20250626, end: 20250904
  2. YUFLYMA [Suspect]
     Active Substance: ADALIMUMAB-AATY
  3. ROSUVASTATIN [Concomitant]
     Active Substance: ROSUVASTATIN
     Indication: Blood cholesterol increased
     Dosage: UNK
     Dates: start: 20180606
  4. APIXABAN [Concomitant]
     Active Substance: APIXABAN
     Indication: Adverse drug reaction
     Dosage: UNK
     Dates: start: 20241127
  5. APIXABAN [Concomitant]
     Active Substance: APIXABAN
     Indication: Thrombosis
  6. BISOPROLOL [Concomitant]
     Active Substance: BISOPROLOL
     Indication: Adverse drug reaction
     Dosage: UNK
     Dates: start: 20241127

REACTIONS (7)
  - Toxicity to various agents [Not Recovered/Not Resolved]
  - Cardiomegaly [Unknown]
  - Cardiac failure [Unknown]
  - Psoriasis [Unknown]
  - Swelling [Unknown]
  - Skin plaque [Unknown]
  - Dyspnoea [Unknown]

NARRATIVE: CASE EVENT DATE: 20250821
